FAERS Safety Report 20562073 (Version 1)
Quarter: 2022Q1

REPORT INFORMATION
  Report Type: Spontaneous
  Country: US (occurrence: US)
  Receive Date: 20220307
  Receipt Date: 20220307
  Transmission Date: 20220424
  Serious: No
  Sender: FDA-Public Use
  Company Number: US-BAYER-2022A032915

PATIENT
  Age: 63 Year

DRUGS (1)
  1. MIRALAX [Suspect]
     Active Substance: POLYETHYLENE GLYCOL 3350
     Indication: Gastrointestinal disorder
     Dosage: I TAKE 2 DOSES A DAY FOR A MONTH.
     Route: 048

REACTIONS (2)
  - Pain in extremity [Unknown]
  - Extra dose administered [Unknown]
